FAERS Safety Report 7410263-6 (Version None)
Quarter: 2011Q2

REPORT INFORMATION
  Report Type: 
  Country: None (occurrence: None)
  Receive Date: 20110412
  Receipt Date: 20110317
  Transmission Date: 20111010
  Serious: Yes (Hospitalization, Other)
  Sender: FDA-Public Use
  Company Number: US-BAYER-201033292NA

PATIENT
  Age: 26 Year
  Sex: Female
  Weight: 62 kg

DRUGS (11)
  1. OCELLA [Suspect]
     Indication: ORAL CONTRACEPTION
     Dosage: UNK UNK, QD
     Dates: start: 20090101, end: 20090101
  2. PEPCID AC [Concomitant]
  3. SOMA [Concomitant]
  4. YAZ [Suspect]
     Indication: ORAL CONTRACEPTION
     Dosage: UNK UNK, QD
     Route: 048
     Dates: start: 20040101, end: 20090101
  5. ZANTAC [Concomitant]
  6. TUMS [Concomitant]
  7. IBUPROFEN [Concomitant]
     Dosage: UNK UNK, PRN
  8. MULTI-VITAMIN [Concomitant]
     Indication: VITAMIN SUPPLEMENTATION
     Dosage: UNK UNK, QD
  9. PEPTO BISMOL [Concomitant]
  10. YASMIN [Suspect]
     Indication: PRODUCT USED FOR UNKNOWN INDICATION
     Route: 048
  11. MYLANTA [Concomitant]

REACTIONS (4)
  - PAIN [None]
  - CHOLECYSTITIS CHRONIC [None]
  - PULMONARY EMBOLISM [None]
  - CHOLECYSTECTOMY [None]
